FAERS Safety Report 9614008 (Version 1)
Quarter: 2013Q4

REPORT INFORMATION
  Report Type: Spontaneous
  Country: US (occurrence: US)
  Receive Date: 20131011
  Receipt Date: 20131011
  Transmission Date: 20140711
  Serious: No
  Sender: FDA-Public Use
  Company Number: US-B.I. PHARMACEUTICALS,INC./RIDGEFIELD-2013-BI-31101BP

PATIENT
  Age: 81 Year
  Sex: Male
  Weight: 59 kg

DRUGS (6)
  1. COMBIVENT [Suspect]
     Indication: ASTHMA
     Dosage: STRENGTH: 20 MCG / 100 MCG
     Route: 055
     Dates: start: 201309
  2. PLAVIX [Concomitant]
     Indication: BLOOD DISORDER
     Route: 048
  3. BABY ASPIRIN [Concomitant]
     Indication: BLOOD DISORDER
     Route: 048
  4. CARBO/LEVO DOPPA [Concomitant]
     Indication: PARKINSON^S DISEASE
     Route: 048
  5. ADVAIR [Concomitant]
     Route: 055
  6. ARECIPT [Concomitant]
     Indication: COGNITIVE DISORDER
     Route: 048

REACTIONS (1)
  - Off label use [Not Recovered/Not Resolved]
